FAERS Safety Report 7998381-5 (Version None)
Quarter: 2011Q4

REPORT INFORMATION
  Report Type: 
  Country: None (occurrence: None)
  Receive Date: 20111221
  Receipt Date: 20110906
  Transmission Date: 20120403
  Serious: No
  Sender: FDA-Public Use
  Company Number: US-GLAXOSMITHKLINE-A0943446A

PATIENT
  Age: 63 Year
  Sex: Male

DRUGS (13)
  1. VIRAMUNE [Concomitant]
  2. COMBIVIR [Concomitant]
  3. ZOLPIDEM [Concomitant]
  4. CRESTOR [Concomitant]
  5. MULTI-VITAMIN [Concomitant]
  6. TAMSULOSIN HCL [Concomitant]
  7. LEVOCARNITINE [Concomitant]
  8. LORATADINE [Concomitant]
  9. LOVAZA [Suspect]
     Indication: BLOOD TRIGLYCERIDES INCREASED
     Dosage: 2CAP TWICE PER DAY
     Route: 048
     Dates: start: 20040101, end: 20110801
  10. SERTRALINE HYDROCHLORIDE [Concomitant]
  11. VITAMIN C [Concomitant]
  12. CALCIUM WITH VITAMIN D [Concomitant]
  13. ANDROGEL [Concomitant]

REACTIONS (2)
  - DYSGEUSIA [None]
  - PRODUCT QUALITY ISSUE [None]
